FAERS Safety Report 8010448-4 (Version None)
Quarter: 2011Q4

REPORT INFORMATION
  Report Type: 
  Country: None (occurrence: None)
  Receive Date: 20111228
  Receipt Date: 20111222
  Transmission Date: 20120403
  Serious: Yes (Other)
  Sender: FDA-Public Use
  Company Number: US-B.I. PHARMACEUTICALS,INC./RIDGEFIELD-2011-BP-23568BP

PATIENT
  Sex: Male
  Weight: 80.74 kg

DRUGS (17)
  1. ISENTRESS [Concomitant]
     Indication: HIV TEST POSITIVE
     Dates: start: 20080404
  2. NORVIR [Concomitant]
     Indication: HIV TEST POSITIVE
     Dates: start: 20070418
  3. GLUMETZA [Concomitant]
     Indication: DIABETES MELLITUS
     Dates: start: 20100514
  4. DIOVAN [Concomitant]
     Indication: HYPERTENSION
     Dosage: 80 MG
     Dates: start: 20100727
  5. TOPROL-XL [Concomitant]
     Indication: HYPERTENSION
     Dosage: 25 MG
     Dates: start: 20070807
  6. ASPIRIN [Concomitant]
     Dosage: 81 MG
     Dates: start: 20110921
  7. EPIVIR [Concomitant]
     Indication: HIV TEST POSITIVE
     Dosage: 300 MG
     Dates: start: 20090716
  8. GLIMEPIRIDE [Concomitant]
     Indication: DIABETES MELLITUS
     Dates: start: 20100514
  9. LANTUS [Concomitant]
     Indication: DIABETES MELLITUS
     Dosage: 15 U
     Dates: start: 20100916
  10. CLINDAMYCIN [Concomitant]
     Indication: FACE AND MOUTH X-RAY ABNORMAL
  11. INTELENCE [Concomitant]
     Indication: HIV TEST POSITIVE
     Dates: start: 20090716
  12. CRESTOR [Concomitant]
     Indication: BLOOD CHOLESTEROL INCREASED
     Dosage: 20 MG
     Dates: start: 20041020
  13. PREZISTA [Concomitant]
     Indication: DIABETES MELLITUS
     Dates: start: 20070418
  14. PRADAXA [Suspect]
     Indication: ATRIAL FIBRILLATION
     Dosage: 300 MG
     Route: 048
     Dates: start: 20110901
  15. VALTREX [Concomitant]
     Indication: HERPES SIMPLEX
     Dosage: 500 MG
     Dates: start: 20080404
  16. ACTOS [Concomitant]
     Indication: DIABETES MELLITUS
     Dosage: 45 MG
     Dates: start: 20080704
  17. DIGOXIN [Concomitant]
     Indication: ATRIAL FIBRILLATION
     Dosage: 0.25 MG
     Dates: start: 20080221

REACTIONS (6)
  - ERUCTATION [None]
  - WHITE BLOOD CELL COUNT DECREASED [None]
  - FATIGUE [None]
  - NAUSEA [None]
  - ABDOMINAL PAIN UPPER [None]
  - DYSPEPSIA [None]
